FAERS Safety Report 9385487 (Version 1)
Quarter: 2013Q3

REPORT INFORMATION
  Report Type: Spontaneous
  Country: DE (occurrence: None)
  Receive Date: 20130701
  Receipt Date: 20130701
  Transmission Date: 20140515
  Serious: Yes (Other)
  Sender: FDA-Public Use
  Company Number: USA/GER/13/0030178

PATIENT
  Age: 17 Year
  Sex: Male

DRUGS (2)
  1. METFORMIN (METFORMIN) [Suspect]
     Indication: TYPE 2 DIABETES MELLITUS
  2. METHYLPHENIDATE [Suspect]
     Indication: DECREASED ACTIVITY

REACTIONS (5)
  - Gastrointestinal disorder [None]
  - Grand mal convulsion [None]
  - Drug intolerance [None]
  - Off label use [None]
  - No therapeutic response [None]
